FAERS Safety Report 5096043-8 (Version None)
Quarter: 2006Q3

REPORT INFORMATION
  Report Type: 
  Country: None (occurrence: None)
  Receive Date: 20060830
  Receipt Date: 20060816
  Transmission Date: 20061208
  Serious: Yes (Other)
  Sender: FDA-Public Use
  Company Number: 2006100272

PATIENT
  Age: 66 Year
  Sex: Male

DRUGS (4)
  1. DILANTIN [Suspect]
     Indication: CONVULSION
     Dosage: 600 MG (1 IN 1 D)
  2. DILANTIN W/PHENOBARBITAL (PHENOBARBITAL PHENYTOIN SODIUM) [Suspect]
     Indication: CONVULSION
  3. CELEBREX [Suspect]
     Indication: DRUG USE FOR UNKNOWN INDICATION
  4. VIOXX [Concomitant]

REACTIONS (5)
  - CONVULSION [None]
  - PHARMACEUTICAL PRODUCT COMPLAINT [None]
  - POOR QUALITY DRUG ADMINISTERED [None]
  - SKIN DISORDER [None]
  - WRONG TECHNIQUE IN DRUG USAGE PROCESS [None]
